FAERS Safety Report 14820458 (Version 1)
Quarter: 2018Q2

REPORT INFORMATION
  Report Type: Spontaneous
  Country: DE (occurrence: DE)
  Receive Date: 20180427
  Receipt Date: 20180427
  Transmission Date: 20180711
  Serious: Yes (Hospitalization)
  Sender: FDA-Public Use
  Company Number: DE-JNJFOC-20180431395

PATIENT
  Age: 81 Year
  Sex: Female
  Weight: 78 kg

DRUGS (5)
  1. VIGANTOLETTEN [Concomitant]
     Active Substance: CHOLECALCIFEROL
     Dosage: 1 TABLET/DAY (1000 TABLETS)
     Route: 065
  2. ASPIRIN. [Concomitant]
     Active Substance: ASPIRIN
     Route: 048
     Dates: start: 201803
  3. SORTIS [Concomitant]
     Active Substance: ATORVASTATIN
     Route: 048
     Dates: start: 201803
  4. BISOHEXAL [Concomitant]
     Active Substance: BISOPROLOL FUMARATE
     Route: 048
  5. XARELTO [Suspect]
     Active Substance: RIVAROXABAN
     Indication: ATRIAL FIBRILLATION
     Route: 048
     Dates: start: 2017, end: 201803

REACTIONS (1)
  - Ischaemic stroke [Recovered/Resolved]

NARRATIVE: CASE EVENT DATE: 20180307
